FAERS Safety Report 10648587 (Version 2)
Quarter: 2015Q1

REPORT INFORMATION
  Report Type: Spontaneous
  Country: US (occurrence: US)
  Receive Date: 20141212
  Receipt Date: 20150122
  Transmission Date: 20150720
  Serious: Yes (Hospitalization, Other)
  Sender: FDA-Public Use
  Company Number: US-ELI_LILLY_AND_COMPANY-US201412001072

PATIENT
  Sex: Male

DRUGS (2)
  1. INSULIN HUMAN [Suspect]
     Active Substance: INSULIN HUMAN
     Indication: DIABETES MELLITUS
     Dosage: 8 U, EACH MORNING
     Route: 065
     Dates: start: 200812
  2. INSULIN HUMAN [Suspect]
     Active Substance: INSULIN HUMAN
     Indication: HYPERGLYCAEMIA
     Dosage: 5 U, EACH EVENING
     Route: 065
     Dates: start: 200812

REACTIONS (5)
  - Colon cancer stage IV [Recovered/Resolved]
  - Balance disorder [Unknown]
  - Fall [Unknown]
  - Blood glucose increased [Unknown]
  - Medication error [Unknown]

NARRATIVE: CASE EVENT DATE: 2009
